FAERS Safety Report 14339161 (Version 1)
Quarter: 2017Q4

REPORT INFORMATION
  Report Type: Spontaneous
  Country: US (occurrence: US)
  Receive Date: 20171230
  Receipt Date: 20171230
  Transmission Date: 20180321
  Serious: Yes (Other)
  Sender: FDA-Public Use
  Company Number: US-ACCORD-062440

PATIENT
  Age: 30 Year
  Sex: Male

DRUGS (2)
  1. METHOTREXATE. [Suspect]
     Active Substance: METHOTREXATE
     Indication: PSORIASIS
  2. ADALIMUMAB [Suspect]
     Active Substance: ADALIMUMAB
     Indication: PSORIATIC ARTHROPATHY

REACTIONS (4)
  - Cellulitis [Recovered/Resolved]
  - Streptococcal infection [Recovered/Resolved]
  - Abscess [Recovered/Resolved]
  - Staphylococcal infection [Recovered/Resolved]
